FAERS Safety Report 12975293 (Version 3)
Quarter: 2016Q4

REPORT INFORMATION
  Report Type: Spontaneous
  Country: PK (occurrence: PK)
  Receive Date: 20161125
  Receipt Date: 20161208
  Transmission Date: 20170207
  Serious: Yes (Death, Life-Threatening, Hospitalization, Disabling, Other)
  Sender: FDA-Public Use
  Company Number: PK-009507513-1611PAK008194

PATIENT
  Age: 43 Year
  Sex: Male
  Weight: 80 kg

DRUGS (8)
  1. TIENAM [Suspect]
     Active Substance: CILASTATIN SODIUM\IMIPENEM
     Indication: PYELONEPHRITIS
     Dosage: 500 MG IN 250 ML NORMAL SALINE OVER 1 HOUR, Q8H, ONE DOSE ADMINISTERED
     Route: 042
     Dates: start: 20160930, end: 20160930
  2. GENTAMICIN SULFATE. [Concomitant]
     Active Substance: GENTAMICIN SULFATE
     Indication: PYELONEPHRITIS
     Dosage: 240 MG, QD
     Route: 042
     Dates: start: 20160925, end: 20160930
  3. CALCIUM CARBONATE. [Concomitant]
     Active Substance: CALCIUM CARBONATE
     Dosage: 800 MG, BID
     Route: 048
     Dates: start: 20160924, end: 20160930
  4. TAZOCIN (AZITHROMYCIN) [Concomitant]
     Indication: PYELONEPHRITIS
     Dosage: 4.5 G, Q8H
     Route: 042
     Dates: start: 20160925, end: 20160930
  5. NEXIUM [Concomitant]
     Active Substance: ESOMEPRAZOLE MAGNESIUM
     Indication: PROPHYLAXIS AGAINST GASTROINTESTINAL ULCER
     Dosage: 40 MG, QD
     Route: 048
     Dates: start: 20160924, end: 20160930
  6. HYDROCORTISONE. [Concomitant]
     Active Substance: HYDROCORTISONE
     Indication: ADDISON^S DISEASE
     Dosage: 100 MG, Q8H
     Route: 042
     Dates: start: 20160924, end: 20160930
  7. VITAMIN D [Concomitant]
     Active Substance: CHOLECALCIFEROL
     Dosage: 2000 IU, DAILY
     Route: 048
     Dates: start: 20160924, end: 20160930
  8. METOCLOPRAMIDE. [Concomitant]
     Active Substance: METOCLOPRAMIDE
     Indication: PROPHYLAXIS OF NAUSEA AND VOMITING
     Dosage: 10 MG, PRN
     Route: 048
     Dates: start: 20160924, end: 20160930

REACTIONS (1)
  - Cardio-respiratory arrest [Fatal]

NARRATIVE: CASE EVENT DATE: 20160930
